FAERS Safety Report 5963814-2 (Version None)
Quarter: 2008Q4

REPORT INFORMATION
  Report Type: 
  Country: None (occurrence: None)
  Receive Date: 20081121
  Receipt Date: 20081121
  Transmission Date: 20090506
  Serious: Yes (Life-Threatening)
  Sender: FDA-Public Use
  Company Number: None

PATIENT
  Age: 60 Year
  Sex: Male
  Weight: 97.4 kg

DRUGS (15)
  1. HEPARIN [Suspect]
     Indication: PROPHYLAXIS
     Dosage: 2100 UNITS/HR IV
     Route: 042
     Dates: start: 20081010, end: 20081013
  2. AMIODARONE HCL [Concomitant]
  3. MEROPENEM [Concomitant]
  4. PRAVASTATIN [Concomitant]
  5. PREVACID [Concomitant]
  6. LEVOTHYROXINE SODIUM [Concomitant]
  7. PLAVIX [Concomitant]
  8. ASPIRIN [Concomitant]
  9. METOPROLOL TARTRATE [Concomitant]
  10. KEPPRA [Concomitant]
  11. DILANTIN [Concomitant]
  12. TRILEPTAL [Concomitant]
  13. COLACE [Concomitant]
  14. INSULIN [Concomitant]
  15. L-CARNITINE [Concomitant]

REACTIONS (7)
  - ACTIVATED PARTIAL THROMBOPLASTIN TIME PROLONGED [None]
  - ATRIAL FIBRILLATION [None]
  - HAEMOGLOBIN DECREASED [None]
  - HYPOTENSION [None]
  - POST PROCEDURAL COMPLICATION [None]
  - RETROPERITONEAL HAEMORRHAGE [None]
  - SICK SINUS SYNDROME [None]
